FAERS Safety Report 18570863 (Version 2)
Quarter: 2021Q2

REPORT INFORMATION
  Report Type: Spontaneous
  Country: US (occurrence: US)
  Receive Date: 20201202
  Receipt Date: 20210602
  Transmission Date: 20210717
  Serious: No
  Sender: FDA-Public Use
  Company Number: US-ROCHE-2678478

PATIENT
  Age: 1 Year
  Sex: Female
  Weight: 9.31 kg

DRUGS (5)
  1. ALBUTEROL SULFATE. [Concomitant]
     Active Substance: ALBUTEROL SULFATE
  2. LACTULOSE. [Concomitant]
     Active Substance: LACTULOSE
  3. POLY?VI?SOL WITH IRON [Concomitant]
     Active Substance: IRON\VITAMINS
  4. EVRYSDI [Suspect]
     Active Substance: RISDIPLAM
     Indication: SPINAL MUSCULAR ATROPHY
     Route: 050
  5. EVRYSDI [Suspect]
     Active Substance: RISDIPLAM
     Route: 050
     Dates: start: 202008

REACTIONS (6)
  - Upper respiratory tract infection [Recovered/Resolved]
  - Ill-defined disorder [Not Recovered/Not Resolved]
  - Constipation [Unknown]
  - Fatigue [Unknown]
  - Pyrexia [Not Recovered/Not Resolved]
  - Diarrhoea [Unknown]

NARRATIVE: CASE EVENT DATE: 202008
